FAERS Safety Report 5563678-5 (Version None)
Quarter: 2007Q4

REPORT INFORMATION
  Report Type: 
  Country: None (occurrence: None)
  Receive Date: 20071217
  Receipt Date: 20070723
  Transmission Date: 20080405
  Serious: No
  Sender: FDA-Public Use
  Company Number: US-ASTRAZENECA-2007UW17800

PATIENT
  Age: 66 Year
  Sex: Female
  Weight: 56.2 kg

DRUGS (9)
  1. CRESTOR [Suspect]
     Route: 048
  2. METOPROLOL [Concomitant]
  3. LEVOXYL [Concomitant]
  4. ASPIRIN [Concomitant]
  5. NASONEX [Concomitant]
  6. PREMCAL [Concomitant]
  7. VITAMIN D [Concomitant]
  8. MULTI-VITAMIN [Concomitant]
  9. ACETAMINOPHEN [Concomitant]

REACTIONS (1)
  - ERYTHEMA [None]
